FAERS Safety Report 23205442 (Version 1)
Quarter: 2023Q4

REPORT INFORMATION
  Report Type: Spontaneous
  Country: IT (occurrence: IT)
  Receive Date: 20231120
  Receipt Date: 20231120
  Transmission Date: 20240110
  Serious: Yes (Hospitalization)
  Sender: FDA-Public Use
  Company Number: IT-MYLANLABS-2023M1123077

PATIENT
  Age: 19 Year
  Sex: Male

DRUGS (4)
  1. RISPERIDONE [Suspect]
     Active Substance: RISPERIDONE
     Indication: Psychotic disorder
     Dosage: 4 MILLIGRAM; SCHEDULED 20 WEEKS
     Route: 065
  2. VENLAFAXINE [Suspect]
     Active Substance: VENLAFAXINE HYDROCHLORIDE
     Indication: Depressive symptom
     Dosage: 75 MILLIGRAM; EXTENDED RELEASE; FURTHER DOSE INCREASED; FOR 6 WEEKS
     Route: 065
  3. VENLAFAXINE [Suspect]
     Active Substance: VENLAFAXINE HYDROCHLORIDE
     Dosage: 225 MILLIGRAM, QD
     Route: 065
  4. BUPROPION [Suspect]
     Active Substance: BUPROPION
     Indication: Depressive symptom
     Dosage: 300 MILLIGRAM
     Route: 065

REACTIONS (5)
  - Somnolence [Unknown]
  - Bradykinesia [Unknown]
  - Akathisia [Unknown]
  - Hypotension [Unknown]
  - Drug ineffective [Unknown]
